FAERS Safety Report 13290407 (Version 2)
Quarter: 2017Q2

REPORT INFORMATION
  Report Type: Report from Study
  Country: CA (occurrence: CA)
  Receive Date: 20170302
  Receipt Date: 20170512
  Transmission Date: 20170830
  Serious: Yes (Hospitalization, Other)
  Sender: FDA-Public Use
  Company Number: CA-AMGEN-CANSL2017029800

PATIENT
  Age: 66 Year
  Sex: Male
  Weight: 69.39 kg

DRUGS (5)
  1. SOTALOL. [Concomitant]
     Active Substance: SOTALOL
     Dosage: 40 MG, BID
  2. VITAMIN D [Concomitant]
     Active Substance: CHOLECALCIFEROL
  3. PROLIA [Suspect]
     Active Substance: DENOSUMAB
     Indication: OSTEOPOROSIS
     Dosage: 60 MG, Q6MO
     Route: 058
     Dates: start: 20150107
  4. CALCIUM [Concomitant]
     Active Substance: CALCIUM
  5. GEFITINIB [Concomitant]
     Active Substance: GEFITINIB
     Dosage: 250 MG, QD

REACTIONS (2)
  - Brain neoplasm [Unknown]
  - Thrombosis [Unknown]

NARRATIVE: CASE EVENT DATE: 20161223
